FAERS Safety Report 9564921 (Version 1)
Quarter: 2013Q3

REPORT INFORMATION
  Report Type: Spontaneous
  Country: CN (occurrence: CN)
  Receive Date: 20130930
  Receipt Date: 20130930
  Transmission Date: 20140515
  Serious: Yes (Death)
  Sender: FDA-Public Use
  Company Number: CN-JNJFOC-20130913681

PATIENT
  Age: 37 Year
  Sex: Male

DRUGS (8)
  1. DOXORUBICIN [Suspect]
     Indication: NATURAL KILLER-CELL LYMPHOBLASTIC LYMPHOMA
     Route: 042
  2. CYCLOPHOSPHAMIDE [Suspect]
     Indication: NATURAL KILLER-CELL LYMPHOBLASTIC LYMPHOMA
     Route: 065
  3. VINCRISTINE [Suspect]
     Indication: NATURAL KILLER-CELL LYMPHOBLASTIC LYMPHOMA
     Route: 065
  4. PREDNISONE [Suspect]
     Indication: NATURAL KILLER-CELL LYMPHOBLASTIC LYMPHOMA
     Route: 065
  5. METHOTREXATE [Suspect]
     Indication: NATURAL KILLER-CELL LYMPHOBLASTIC LYMPHOMA
     Route: 065
  6. IFOSFAMIDE [Suspect]
     Indication: NATURAL KILLER-CELL LYMPHOBLASTIC LYMPHOMA
     Route: 065
  7. L-ASPARAGINASE [Suspect]
     Indication: NATURAL KILLER-CELL LYMPHOBLASTIC LYMPHOMA
     Route: 065
  8. ETOPOSIDE [Suspect]
     Indication: NATURAL KILLER-CELL LYMPHOBLASTIC LYMPHOMA
     Route: 065

REACTIONS (1)
  - Septic shock [Fatal]
